FAERS Safety Report 21838895 (Version 1)
Quarter: 2023Q1

REPORT INFORMATION
  Report Type: Spontaneous
  Country: CL (occurrence: CL)
  Receive Date: 20230109
  Receipt Date: 20230109
  Transmission Date: 20230418
  Serious: Yes (Other)
  Sender: FDA-Public Use
  Company Number: CL-HETERO-HET2017CL00008

PATIENT
  Age: 11 Year
  Sex: Female

DRUGS (1)
  1. TENOFOVIR [Suspect]
     Active Substance: TENOFOVIR
     Indication: HIV infection
     Dosage: 300 MG, QD
     Route: 065

REACTIONS (2)
  - Fanconi syndrome [Recovered/Resolved]
  - Hypophosphataemic osteomalacia [Recovered/Resolved]
